FAERS Safety Report 5500769-9 (Version None)
Quarter: 2007Q4

REPORT INFORMATION
  Report Type: 
  Country: None (occurrence: None)
  Receive Date: 20071029
  Receipt Date: 20071024
  Transmission Date: 20080405
  Serious: Yes (Death)
  Sender: FDA-Public Use
  Company Number: JP-BRISTOL-MYERS SQUIBB COMPANY-13944327

PATIENT
  Age: 28 Year
  Sex: Female

DRUGS (8)
  1. VEPESID [Suspect]
     Indication: ACUTE LYMPHOCYTIC LEUKAEMIA
     Route: 041
     Dates: start: 20060417, end: 20060419
  2. ENDOXAN [Suspect]
     Indication: ACUTE LYMPHOCYTIC LEUKAEMIA
     Route: 041
     Dates: start: 20060307, end: 20060307
  3. ONCOVIN [Suspect]
     Indication: ACUTE LYMPHOCYTIC LEUKAEMIA
     Route: 041
     Dates: start: 20060306, end: 20060327
  4. CYLOCIDE [Suspect]
     Indication: ACUTE LYMPHOCYTIC LEUKAEMIA
     Dosage: CYTORABINE 2.7GX2 PER DAY WAS GIVEN FROM 17-APR-2006 TO 20-APR-2006 FOR 4 DAYS.
     Route: 041
     Dates: start: 20060710, end: 20060721
  5. LEUNASE [Suspect]
     Indication: ACUTE LYMPHOCYTIC LEUKAEMIA
     Route: 041
     Dates: start: 20060330, end: 20060403
  6. ADRIAMYCIN PFS [Concomitant]
     Route: 042
  7. METHOTREXATE [Concomitant]
     Route: 042
  8. MERCAPTOPURINE [Concomitant]
     Route: 048

REACTIONS (2)
  - ACUTE MYELOID LEUKAEMIA [None]
  - PNEUMONIA [None]
